FAERS Safety Report 10662131 (Version 1)
Quarter: 2014Q4

REPORT INFORMATION
  Report Type: Spontaneous
  Country: US (occurrence: None)
  Receive Date: 20141217
  Receipt Date: 20141217
  Transmission Date: 20150529
  Serious: No
  Sender: FDA-Public Use
  Company Number: None

PATIENT

DRUGS (7)
  1. LORAZEPAM. [Concomitant]
     Active Substance: LORAZEPAM
  2. PROCHLOROPERAZINE [Concomitant]
     Active Substance: PROCHLORPERAZINE
  3. AFINITOR [Suspect]
     Active Substance: EVEROLIMUS
     Indication: NEOPLASM MALIGNANT
     Route: 048
     Dates: start: 20140917, end: 201411
  4. ANASTROZOLE. [Concomitant]
     Active Substance: ANASTROZOLE
  5. AROMASIN [Concomitant]
     Active Substance: EXEMESTANE
  6. ONDANSETRON [Concomitant]
     Active Substance: ONDANSETRON
  7. LEVOFLOXACIN. [Concomitant]
     Active Substance: LEVOFLOXACIN

REACTIONS (1)
  - Drug ineffective [None]
